FAERS Safety Report 23291306 (Version 2)
Quarter: 2023Q4

REPORT INFORMATION
  Report Type: Spontaneous
  Country: US (occurrence: US)
  Receive Date: 20231213
  Receipt Date: 20231222
  Transmission Date: 20240110
  Serious: No
  Sender: FDA-Public Use
  Company Number: US-HETERO-HET2023US03487

PATIENT
  Sex: Male
  Weight: 106.57 kg

DRUGS (1)
  1. VALACYCLOVIR [Suspect]
     Active Substance: VALACYCLOVIR HYDROCHLORIDE
     Indication: Herpes virus infection
     Dosage: 500 MILLIGRAM, QD
     Route: 048

REACTIONS (3)
  - Rash vesicular [Recovered/Resolved]
  - Product substitution issue [Unknown]
  - Drug ineffective [Unknown]
